FAERS Safety Report 12880053 (Version 1)
Quarter: 2016Q4

REPORT INFORMATION
  Report Type: Spontaneous
  Country: US (occurrence: US)
  Receive Date: 20161021
  Receipt Date: 20161021
  Transmission Date: 20170207
  Serious: Yes (Hospitalization)
  Sender: FDA-Public Use
  Company Number: None

PATIENT
  Age: 71 Year
  Sex: Male

DRUGS (1)
  1. CYCLOPHOSPHAMIDE 50MG CAP WEST-WARD [Suspect]
     Active Substance: CYCLOPHOSPHAMIDE
     Dosage: 50MG CAP 3 CAPS ONCE DAILY PO
     Route: 048
     Dates: start: 20160829, end: 20160928

REACTIONS (2)
  - White blood cell count decreased [None]
  - Infection [None]

NARRATIVE: CASE EVENT DATE: 20160829
